FAERS Safety Report 8524437-4 (Version None)
Quarter: 2012Q3

REPORT INFORMATION
  Report Type: 
  Country: None (occurrence: None)
  Receive Date: 20120720
  Receipt Date: 20120717
  Transmission Date: 20120928
  Serious: No
  Sender: FDA-Public Use
  Company Number: US-PFIZER INC-2012172799

PATIENT
  Sex: Male

DRUGS (3)
  1. FENTANYL [Suspect]
     Dosage: UNK
     Route: 062
  2. CELEBREX [Suspect]
     Indication: PAIN
  3. CELEBREX [Suspect]
     Indication: SCIATICA
     Dosage: 200 MG, 1X/DAY
     Dates: start: 20120701, end: 20120701

REACTIONS (1)
  - DYSPNOEA [None]
